FAERS Safety Report 5149742-3 (Version None)
Quarter: 2006Q4

REPORT INFORMATION
  Report Type: 
  Country: None (occurrence: None)
  Receive Date: 20061113
  Receipt Date: 20060822
  Transmission Date: 20070319
  Serious: Yes (Other)
  Sender: FDA-Public Use
  Company Number: US-AMGEN-US191067

PATIENT
  Sex: Female
  Weight: 72.6 kg

DRUGS (10)
  1. NEUPOGEN [Suspect]
     Indication: NEUTROPENIA
     Route: 065
     Dates: start: 20060524
  2. PEG-INTRON [Suspect]
     Route: 058
     Dates: start: 20060215
  3. RIBAVIRIN [Suspect]
     Route: 048
     Dates: start: 20060215
  4. ALBUTEROL [Concomitant]
     Route: 055
  5. LORCET-HD [Concomitant]
     Route: 048
  6. PREMARIN [Concomitant]
     Route: 048
  7. SOMA [Concomitant]
     Route: 048
  8. XANAX [Concomitant]
     Route: 048
  9. MICARDIS [Concomitant]
     Dates: end: 20060801
  10. LISINOPRIL [Concomitant]
     Dates: end: 20060801

REACTIONS (20)
  - ARTHRALGIA [None]
  - BACK PAIN [None]
  - BLOOD PRESSURE DECREASED [None]
  - BLOOD PRESSURE INCREASED [None]
  - CARDIAC FAILURE CONGESTIVE [None]
  - DISTURBANCE IN ATTENTION [None]
  - DIZZINESS [None]
  - DYSPHAGIA [None]
  - GAIT DISTURBANCE [None]
  - HEADACHE [None]
  - HYPERSENSITIVITY [None]
  - NEUROPATHY PERIPHERAL [None]
  - OEDEMA PERIPHERAL [None]
  - PLATELET COUNT DECREASED [None]
  - SENSORY LOSS [None]
  - SKIN DISCOLOURATION [None]
  - STOMATITIS [None]
  - TRANSIENT ISCHAEMIC ATTACK [None]
  - WEIGHT DECREASED [None]
  - WHITE BLOOD CELL COUNT DECREASED [None]
